FAERS Safety Report 4579271-7 (Version None)
Quarter: 2005Q1

REPORT INFORMATION
  Report Type: 
  Country: None (occurrence: None)
  Receive Date: 20050210
  Receipt Date: 20050210
  Transmission Date: 20050727
  Serious: No
  Sender: FDA-Public Use
  Company Number: None

PATIENT
  Sex: Female
  Weight: 66.5 kg

DRUGS (3)
  1. CYTARABINE [Suspect]
     Dosage: 100 MG/M2 / DAY CIV ON DAYS 1-7
  2. DAUNOMYCIN [Suspect]
     Dosage: 90MG/M2 IV OVER 5-10 MIN ON DAYS 1, 2, AND 3
     Route: 042
  3. ETOPOSIDE [Suspect]
     Dosage: 213:100 MG/M2 IV OVER 2 HOURS ON DAYS 1, 2, AND 3
     Route: 042

REACTIONS (2)
  - PYREXIA [None]
  - SYNCOPE [None]
